FAERS Safety Report 8815067 (Version 2)
Quarter: 2014Q3

REPORT INFORMATION
  Report Type: Report from Study
  Country: US (occurrence: US)
  Receive Date: 20120928
  Receipt Date: 20140904
  Transmission Date: 20150326
  Serious: Yes (Death, Other)
  Sender: FDA-Public Use
  Company Number: US-ROCHE-1127612

PATIENT
  Sex: Female

DRUGS (8)
  1. XELODA [Suspect]
     Active Substance: CAPECITABINE
     Route: 065
     Dates: start: 20100625
  2. HERCEPTIN [Suspect]
     Active Substance: TRASTUZUMAB
     Indication: BREAST CANCER
     Route: 065
     Dates: end: 201003
  3. GEMZAR [Concomitant]
     Active Substance: GEMCITABINE HYDROCHLORIDE
  4. TAXOL [Concomitant]
     Active Substance: PACLITAXEL
  5. AVASTIN [Suspect]
     Active Substance: BEVACIZUMAB
     Indication: BREAST CANCER METASTATIC
  6. XELODA [Suspect]
     Active Substance: CAPECITABINE
     Indication: BREAST CANCER
     Route: 065
     Dates: end: 201003
  7. AVASTIN [Suspect]
     Active Substance: BEVACIZUMAB
     Indication: BREAST CANCER
     Route: 065
  8. TYKERB [Concomitant]
     Active Substance: LAPATINIB DITOSYLATE
     Route: 065
     Dates: start: 20100625

REACTIONS (6)
  - Death [Fatal]
  - Abdominal pain upper [Unknown]
  - Drug intolerance [Unknown]
  - Metastases to central nervous system [Unknown]
  - Exfoliative rash [Unknown]
  - Off label use [Unknown]
